FAERS Safety Report 9921118 (Version 2)
Quarter: 2015Q4

REPORT INFORMATION
  Report Type: Report from Study
  Country: US (occurrence: US)
  Receive Date: 20140225
  Receipt Date: 20151105
  Transmission Date: 20160305
  Serious: Yes (Other)
  Sender: FDA-Public Use
  Company Number: US-ROCHE-1332954

PATIENT
  Sex: Female

DRUGS (24)
  1. LASIX [Concomitant]
     Active Substance: FUROSEMIDE
  2. MELATONIN [Concomitant]
     Active Substance: MELATONIN
  3. FENTANYL. [Concomitant]
     Active Substance: FENTANYL
  4. AVASTIN [Suspect]
     Active Substance: BEVACIZUMAB
     Indication: PRODUCT USED FOR UNKNOWN INDICATION
     Route: 047
     Dates: end: 20100119
  5. LIPITOR [Concomitant]
     Active Substance: ATORVASTATIN CALCIUM
  6. ZANTAC [Concomitant]
     Active Substance: RANITIDINE HYDROCHLORIDE
  7. LUCENTIS [Suspect]
     Active Substance: RANIBIZUMAB
     Indication: NEOVASCULAR AGE-RELATED MACULAR DEGENERATION
  8. GLUCOPHAGE [Concomitant]
     Active Substance: METFORMIN HYDROCHLORIDE
     Route: 065
  9. VALTREX [Concomitant]
     Active Substance: VALACYCLOVIR HYDROCHLORIDE
  10. SYSTANE (UNITED STATES) [Concomitant]
     Dosage: AS NEEDED OU
     Route: 047
  11. LIDODERM [Concomitant]
     Active Substance: LIDOCAINE
     Dosage: PATCH
     Route: 065
  12. WELLBUTRIN [Concomitant]
     Active Substance: BUPROPION HYDROCHLORIDE
  13. FEXOFENADINE [Concomitant]
     Active Substance: FEXOFENADINE\FEXOFENADINE HYDROCHLORIDE
  14. LUCENTIS [Suspect]
     Active Substance: RANIBIZUMAB
     Indication: DIABETIC RETINAL OEDEMA
     Route: 050
  15. WELCHOL [Concomitant]
     Active Substance: COLESEVELAM HYDROCHLORIDE
  16. INSULIN [Concomitant]
     Active Substance: INSULIN NOS
  17. TOBRADEX [Concomitant]
     Active Substance: DEXAMETHASONE\TOBRAMYCIN
  18. ASPIRIN. [Concomitant]
     Active Substance: ASPIRIN
  19. OCUFLOX (UNITED STATES) [Concomitant]
  20. LUCENTIS [Suspect]
     Active Substance: RANIBIZUMAB
     Indication: DIABETIC RETINOPATHY
     Route: 050
  21. SYNTHROID [Concomitant]
     Active Substance: LEVOTHYROXINE SODIUM
  22. CELEBREX [Concomitant]
     Active Substance: CELECOXIB
  23. ATIVAN [Concomitant]
     Active Substance: LORAZEPAM
  24. ESTRACE [Concomitant]
     Active Substance: ESTRADIOL

REACTIONS (8)
  - Visual impairment [Unknown]
  - Visual acuity reduced [Unknown]
  - Oedema peripheral [Unknown]
  - Eye pruritus [Unknown]
  - Vision blurred [Unknown]
  - Dry eye [Unknown]
  - Drug ineffective [Unknown]
  - Metamorphopsia [Unknown]
